FAERS Safety Report 12725584 (Version 1)
Quarter: 2016Q3

REPORT INFORMATION
  Report Type: Spontaneous
  Country: US (occurrence: US)
  Receive Date: 20160908
  Receipt Date: 20160908
  Transmission Date: 20161109
  Serious: No
  Sender: FDA-Public Use
  Company Number: US-BAYER-2016-173356

PATIENT
  Age: 31 Year
  Sex: Female

DRUGS (3)
  1. GADAVIST [Suspect]
     Active Substance: GADOBUTROL
     Indication: HEADACHE
     Dosage: 5.5 ML, ONCE
     Dates: start: 20160902, end: 20160902
  2. GADAVIST [Suspect]
     Active Substance: GADOBUTROL
     Indication: DIZZINESS
  3. GADAVIST [Suspect]
     Active Substance: GADOBUTROL
     Indication: FATIGUE

REACTIONS (4)
  - Sneezing [Unknown]
  - Eye pruritus [Unknown]
  - Urticaria [Unknown]
  - Throat irritation [Unknown]

NARRATIVE: CASE EVENT DATE: 20160902
